FAERS Safety Report 16189197 (Version 1)
Quarter: 2019Q2

REPORT INFORMATION
  Report Type: Report from Study
  Country: DE (occurrence: DE)
  Receive Date: 20190412
  Receipt Date: 20190412
  Transmission Date: 20190711
  Serious: Yes (Hospitalization, Other)
  Sender: FDA-Public Use
  Company Number: DE-ROCHE-1657269

PATIENT
  Sex: Male

DRUGS (17)
  1. ACICLOVIR [Concomitant]
     Active Substance: ACYCLOVIR
     Indication: PROPHYLAXIS
     Route: 048
  2. COLECALCIFEROL [Concomitant]
     Active Substance: CHOLECALCIFEROL
     Route: 048
  3. ALLOPURINOL. [Concomitant]
     Active Substance: ALLOPURINOL
     Indication: PROPHYLAXIS
  4. AMLODIPINE [Concomitant]
     Active Substance: AMLODIPINE BESYLATE
     Indication: HYPERTENSION
     Route: 048
  5. LIPOSOMAL VINCRISTINE [Suspect]
     Active Substance: VINCRISTINE
     Indication: B-CELL LYMPHOMA
     Dosage: LAST DOSE PRIOR TO SAE: 21/OCT/2015.
     Route: 042
     Dates: start: 20150908
  6. PREDNISOLONE. [Suspect]
     Active Substance: PREDNISOLONE
     Indication: B-CELL LYMPHOMA
     Dosage: LAST DOSE PRIOR TO SAE: 21/OCT/2015.
     Route: 065
     Dates: start: 20150908
  7. DOXORUBICINE [Suspect]
     Active Substance: DOXORUBICIN
     Indication: B-CELL LYMPHOMA
     Dosage: LAST DOSE PRIOR TO SAE: 21/OCT/2015.
     Route: 042
     Dates: start: 20150908
  8. ENALAPRIL MALEAT [Concomitant]
     Active Substance: ENALAPRIL MALEATE
     Indication: HYPERTENSION
     Route: 048
  9. HYDROCHLOROTHIAZIDE. [Concomitant]
     Active Substance: HYDROCHLOROTHIAZIDE
     Indication: HYPERTENSION
     Route: 048
  10. METOPROLOL. [Concomitant]
     Active Substance: METOPROLOL
     Indication: TACHYCARDIA
     Route: 048
  11. METHOTREXATE DISODIUM [Suspect]
     Active Substance: METHOTREXATE SODIUM
     Indication: B-CELL LYMPHOMA
     Dosage: CYCLE 1
     Route: 042
     Dates: start: 20150829
  12. RITUXIMAB. [Suspect]
     Active Substance: RITUXIMAB
     Indication: B-CELL LYMPHOMA
     Dosage: LAST DOSE PRIOR TO SAE: 20/OCT/2015.?MOST RECENT CYCLE NUMBER: 4
     Route: 042
     Dates: start: 20150828
  13. PEGFILGRASTIM [Suspect]
     Active Substance: PEGFILGRASTIM
     Indication: B-CELL LYMPHOMA
     Route: 058
     Dates: start: 20150911
  14. ALLOPURINOL. [Concomitant]
     Active Substance: ALLOPURINOL
     Indication: HYPERURICAEMIA
     Route: 048
  15. SULFAMETHOXAZOLE/TRIMETHOPRIM [Concomitant]
     Active Substance: SULFAMETHOXAZOLE\TRIMETHOPRIM
     Indication: INFECTION PROPHYLAXIS
     Route: 048
  16. CYCLOPHOSPHAMIDE. [Suspect]
     Active Substance: CYCLOPHOSPHAMIDE
     Indication: B-CELL LYMPHOMA
     Dosage: LAST DOSE PRIOR TO SAE: 21/OCT/2015.
     Route: 042
     Dates: start: 20150908
  17. PANTOPRAZOL NATRIUM [Concomitant]
     Active Substance: PANTOPRAZOLE SODIUM
     Indication: GASTROOESOPHAGEAL REFLUX PROPHYLAXIS
     Route: 048

REACTIONS (7)
  - Arrhythmia [Unknown]
  - Diarrhoea [Recovered/Resolved]
  - Cholecystitis [Unknown]
  - Mastitis [Unknown]
  - Pulmonary embolism [Recovered/Resolved]
  - Acute kidney injury [Unknown]
  - Hypokalaemia [Unknown]

NARRATIVE: CASE EVENT DATE: 20151104
